FAERS Safety Report 9677427 (Version 1)
Quarter: 2013Q4

REPORT INFORMATION
  Report Type: Report from Study
  Country: US (occurrence: US)
  Receive Date: 20131108
  Receipt Date: 20131108
  Transmission Date: 20140711
  Serious: Yes (Hospitalization)
  Sender: FDA-Public Use
  Company Number: US-CELGENEUS-163-21880-13105389

PATIENT
  Age: 72 Year
  Sex: Male
  Weight: 110.5 kg

DRUGS (6)
  1. REVLIMID [Suspect]
     Indication: PLASMA CELL MYELOMA
     Dosage: 25 MILLIGRAM
     Route: 048
     Dates: start: 20130102
  2. REVLIMID [Suspect]
     Dosage: 25 MILLIGRAM
     Route: 048
     Dates: start: 20130912, end: 20131002
  3. LEVOTHYROXINE [Suspect]
     Indication: PRODUCT USED FOR UNKNOWN INDICATION
     Dosage: 137 MICROGRAM
     Route: 048
  4. LEVOTHYROXINE [Suspect]
     Dosage: 100 MICROGRAM
     Route: 048
  5. ASPIRIN [Suspect]
     Indication: PRODUCT USED FOR UNKNOWN INDICATION
     Route: 065
  6. HYDROCHLOROTHIAZIDE [Suspect]
     Indication: PRODUCT USED FOR UNKNOWN INDICATION
     Route: 065

REACTIONS (7)
  - Confusional state [Unknown]
  - Hearing impaired [Unknown]
  - Blood bilirubin increased [Unknown]
  - Dehydration [Unknown]
  - Platelet count decreased [Unknown]
  - Cellulitis [Recovered/Resolved]
  - Pyrexia [Unknown]
